FAERS Safety Report 21225715 (Version 1)
Quarter: 2022Q3

REPORT INFORMATION
  Report Type: Report from Study
  Country: NO (occurrence: NO)
  Receive Date: 20220818
  Receipt Date: 20220818
  Transmission Date: 20221026
  Serious: Yes (Death, Other)
  Sender: FDA-Public Use
  Company Number: NO-JNJFOC-20220821403

PATIENT

DRUGS (4)
  1. REMICADE [Suspect]
     Active Substance: INFLIXIMAB
     Indication: Crohn^s disease
     Route: 041
  2. SIMPONI [Suspect]
     Active Substance: GOLIMUMAB
     Indication: Product used for unknown indication
     Route: 058
  3. ADALIMUMAB [Suspect]
     Active Substance: ADALIMUMAB
     Indication: Product used for unknown indication
  4. CERTOLIZUMAB [Suspect]
     Active Substance: CERTOLIZUMAB
     Indication: Product used for unknown indication

REACTIONS (11)
  - Bacteraemia [Fatal]
  - Testis cancer [Unknown]
  - Malignant melanoma [Unknown]
  - Colorectal cancer [Unknown]
  - Cholangiocarcinoma [Unknown]
  - Non-Hodgkin^s lymphoma [Unknown]
  - Chronic myelomonocytic leukaemia [Unknown]
  - Infection [Unknown]
  - Muscle disorder [Unknown]
  - Skin reaction [Unknown]
  - Arthropathy [Unknown]
